FAERS Safety Report 13191193 (Version 1)
Quarter: 2017Q1

REPORT INFORMATION
  Report Type: Report from Study
  Country: US (occurrence: US)
  Receive Date: 20170207
  Receipt Date: 20170207
  Transmission Date: 20170428
  Serious: No
  Sender: FDA-Public Use
  Company Number: PHEH2017US003519

PATIENT
  Age: 64 Year
  Sex: Male

DRUGS (1)
  1. COSENTYX [Suspect]
     Active Substance: SECUKINUMAB
     Indication: PRODUCT USED FOR UNKNOWN INDICATION
     Dosage: 150 MG/KG, QW
     Route: 058
     Dates: start: 20170103

REACTIONS (3)
  - Device malfunction [Recovering/Resolving]
  - Incorrect dose administered [Unknown]
  - Injection site injury [Unknown]

NARRATIVE: CASE EVENT DATE: 20170130
